FAERS Safety Report 4936495-4 (Version None)
Quarter: 2006Q1

REPORT INFORMATION
  Report Type: 
  Country: None (occurrence: None)
  Receive Date: 20060307
  Receipt Date: 20050208
  Transmission Date: 20060701
  Serious: Yes (Hospitalization)
  Sender: FDA-Public Use
  Company Number: US-MERCK-0502USA01126

PATIENT
  Age: 52 Year
  Sex: Male
  Weight: 107 kg

DRUGS (2)
  1. VIOXX [Suspect]
     Indication: GOUT
     Route: 048
     Dates: start: 20010101, end: 20030601
  2. VIOXX [Suspect]
     Route: 048
     Dates: start: 20010101, end: 20030601

REACTIONS (2)
  - CEREBROVASCULAR ACCIDENT [None]
  - LIMB INJURY [None]
